FAERS Safety Report 12613889 (Version 2)
Quarter: 2017Q2

REPORT INFORMATION
  Report Type: Spontaneous
  Country: US (occurrence: US)
  Receive Date: 20160802
  Receipt Date: 20170417
  Transmission Date: 20170830
  Serious: No
  Sender: FDA-Public Use
  Company Number: US-PFIZER INC-2016363400

PATIENT
  Age: 59 Year
  Sex: Female

DRUGS (1)
  1. XELJANZ [Suspect]
     Active Substance: TOFACITINIB CITRATE
     Dosage: 5 MG, UNK
     Dates: start: 20130310

REACTIONS (5)
  - Rash [Unknown]
  - Inflammation [Unknown]
  - Inflammatory marker increased [Unknown]
  - Arthralgia [Unknown]
  - Pain in extremity [Unknown]
